FAERS Safety Report 24222733 (Version 1)
Quarter: 2024Q3

REPORT INFORMATION
  Report Type: Spontaneous
  Country: US (occurrence: US)
  Receive Date: 20240819
  Receipt Date: 20240819
  Transmission Date: 20241016
  Serious: No
  Sender: PFIZER
  Company Number: US-PFIZER INC-PV202400106453

PATIENT
  Age: 32 Year
  Sex: Female

DRUGS (1)
  1. ZAVZPRET [Suspect]
     Active Substance: ZAVEGEPANT HYDROCHLORIDE
     Indication: Migraine
     Dosage: 1 SPRAY INTO AFFECTED NOSTRIL (S) EVERY DAY AS NEEDED; MAX 1 SPRAY PER 24 HOURS
     Route: 045

REACTIONS (3)
  - Nausea [Unknown]
  - Vomiting [Unknown]
  - Dysgeusia [Unknown]
